FAERS Safety Report 24913308 (Version 1)
Quarter: 2025Q1

REPORT INFORMATION
  Report Type: Spontaneous
  Country: TW (occurrence: TW)
  Receive Date: 20250201
  Receipt Date: 20250201
  Transmission Date: 20250408
  Serious: Yes (Hospitalization)
  Sender: MACLEODS
  Company Number: TW-MACLEODS PHARMA-MAC2025051407

PATIENT

DRUGS (4)
  1. QUETIAPINE [Suspect]
     Active Substance: QUETIAPINE
     Indication: Bipolar I disorder
     Route: 065
  2. QUETIAPINE [Suspect]
     Active Substance: QUETIAPINE
     Route: 065
  3. LITHIUM [Concomitant]
     Active Substance: LITHIUM
     Indication: Bipolar I disorder
     Route: 065
  4. LITHIUM [Concomitant]
     Active Substance: LITHIUM
     Route: 065

REACTIONS (3)
  - Rabbit syndrome [Recovered/Resolved]
  - Akathisia [Recovered/Resolved]
  - Restlessness [Recovered/Resolved]
